FAERS Safety Report 15132174 (Version 1)
Quarter: 2018Q3

REPORT INFORMATION
  Report Type: Spontaneous
  Country: US (occurrence: US)
  Receive Date: 20180615
  Receipt Date: 20180615
  Transmission Date: 20181010
  Serious: Yes (Other)
  Sender: FDA-Public Use
  Company Number: None

PATIENT
  Age: 40 Year
  Sex: Male
  Weight: 81.65 kg

DRUGS (1)
  1. GLATIRAMER 40MG [Suspect]
     Active Substance: GLATIRAMER
     Indication: MULTIPLE SCLEROSIS
     Route: 058
     Dates: start: 20180415, end: 20180521

REACTIONS (6)
  - Contusion [None]
  - Hyperhidrosis [None]
  - Rash [None]
  - Restlessness [None]
  - Headache [None]
  - Pharyngeal oedema [None]

NARRATIVE: CASE EVENT DATE: 20180521
